FAERS Safety Report 5593553-1 (Version None)
Quarter: 2007Q4

REPORT INFORMATION
  Report Type: 
  Country: None (occurrence: None)
  Receive Date: 20071214
  Receipt Date: 20061120
  Transmission Date: 20080405
  Serious: Yes (Other)
  Sender: FDA-Public Use
  Company Number: 2006144262

PATIENT
  Age: 60 Year
  Sex: Male
  Weight: 136.0791 kg

DRUGS (3)
  1. XANAX [Suspect]
     Indication: SLEEP DISORDER
     Dosage: FROM 6MG TO 8MG (0.5 MG)
     Dates: start: 20010101
  2. AMBIEN [Concomitant]
  3. BENADRYL [Concomitant]

REACTIONS (3)
  - DRUG DEPENDENCE [None]
  - DRUG INEFFECTIVE [None]
  - INSOMNIA [None]
